FAERS Safety Report 24719522 (Version 2)
Quarter: 2024Q4

REPORT INFORMATION
  Report Type: Spontaneous
  Country: JP (occurrence: JP)
  Receive Date: 20241211
  Receipt Date: 20241226
  Transmission Date: 20250115
  Serious: Yes (Hospitalization, Other)
  Sender: NOVO NORDISK
  Company Number: JP-NOVOPROD-1321166

PATIENT
  Age: 53 Year
  Sex: Male
  Weight: 77.6 kg

DRUGS (16)
  1. RYBELSUS [Suspect]
     Active Substance: SEMAGLUTIDE
     Indication: Type 2 diabetes mellitus
     Dosage: 140 MG, QD(20 TABLETS OF RYBELSUS 7 MG )
     Route: 048
     Dates: start: 20240206, end: 20241114
  2. SAMSCA [Concomitant]
     Active Substance: TOLVAPTAN
     Indication: Inappropriate antidiuretic hormone secretion
     Dosage: 3.75 MG, QD
     Route: 048
     Dates: start: 20190226
  3. INSULIN GLARGINE [Suspect]
     Active Substance: INSULIN GLARGINE
     Indication: Type 2 diabetes mellitus
     Dosage: 300.00 IU, QD
     Route: 058
     Dates: start: 20240507, end: 20241114
  4. METFORMIN HYDROCHLORIDE [Concomitant]
     Active Substance: METFORMIN HYDROCHLORIDE
     Indication: Type 2 diabetes mellitus
     Dosage: 1500 MG, QD
     Route: 048
     Dates: start: 20150709, end: 20241114
  5. NEXIUM I.V. [Concomitant]
     Active Substance: ESOMEPRAZOLE SODIUM
     Indication: Gastrooesophageal reflux disease
     Dosage: 20 MG, QD
     Route: 048
     Dates: start: 20220401
  6. PEMAFIBRATE [Concomitant]
     Active Substance: PEMAFIBRATE
     Indication: Dyslipidaemia
     Dosage: 0.2 MG, QD
     Route: 048
     Dates: start: 20190828
  7. PITAVASTATIN CALCIUM [Concomitant]
     Active Substance: PITAVASTATIN CALCIUM
     Indication: Dyslipidaemia
     Dosage: 1 MG, QD
     Route: 048
     Dates: start: 20150805
  8. VOGLIBOSE [Concomitant]
     Active Substance: VOGLIBOSE
     Indication: Type 2 diabetes mellitus
     Dosage: 0.6 MG, QD
     Route: 048
     Dates: start: 20240206, end: 20241114
  9. BETAHISTINE MESILATE [Concomitant]
     Active Substance: BETAHISTINE MESILATE
     Indication: Dizziness
     Dosage: 18 MG, QD
     Route: 048
     Dates: start: 20190227
  10. LOXOPROFEN SODIUM [Concomitant]
     Active Substance: LOXOPROFEN SODIUM
     Indication: Back pain
     Dosage: 120 MG, QD
     Route: 048
  11. GLIMEPIRIDE [Concomitant]
     Active Substance: GLIMEPIRIDE
     Indication: Type 2 diabetes mellitus
     Dosage: 1 MG, QD
     Route: 048
     Dates: start: 20111005, end: 20241114
  12. REBAMIPIDE [Concomitant]
     Active Substance: REBAMIPIDE
     Indication: Gastrooesophageal reflux disease
     Dosage: 100 MG, QD
     Route: 048
     Dates: start: 20191225
  13. VOLTAREN RETARD [DICLOFENAC] [Concomitant]
     Indication: Back pain
     Dosage: 37.5 MG, QD
     Route: 048
     Dates: start: 20191225
  14. EPERISONE HYDROCHLORIDE [Concomitant]
     Active Substance: EPERISONE HYDROCHLORIDE
     Indication: Back pain
     Dosage: 50 MG, QD
     Route: 048
  15. LEVOMEPROMAZINE HYDROCHLORIDE [Concomitant]
     Active Substance: LEVOMEPROMAZINE HYDROCHLORIDE
     Indication: Depression
     Dosage: 100 MG, QD
     Route: 048
  16. HIBERNAL [CHLORPROMAZINE] [Concomitant]
     Indication: Depression
     Dosage: 50 MG, QD
     Route: 048

REACTIONS (5)
  - Suicide attempt [Unknown]
  - Intentional overdose [Recovered/Resolved]
  - Hypoglycaemia [Recovered/Resolved]
  - Feeling abnormal [Unknown]
  - Decreased activity [Unknown]

NARRATIVE: CASE EVENT DATE: 20241114
